FAERS Safety Report 25540240 (Version 2)
Quarter: 2025Q3

REPORT INFORMATION
  Report Type: Report from Study
  Country: EU (occurrence: EU)
  Receive Date: 20250710
  Receipt Date: 20250722
  Transmission Date: 20251021
  Serious: Yes (Other)
  Sender: AMGEN
  Company Number: EU-AMGEN-IRLSL2025132001

PATIENT
  Age: 51 Year
  Sex: Female

DRUGS (1)
  1. NEULASTA [Suspect]
     Active Substance: PEGFILGRASTIM
     Indication: Product used for unknown indication
     Route: 058
     Dates: start: 20250702

REACTIONS (3)
  - Mastectomy [Recovering/Resolving]
  - Post procedural discharge [Recovering/Resolving]
  - Bone pain [Recovered/Resolved]

NARRATIVE: CASE EVENT DATE: 20250703
